FAERS Safety Report 4591157-0 (Version None)
Quarter: 2005Q1

REPORT INFORMATION
  Report Type: 
  Country: None (occurrence: None)
  Receive Date: 20050218
  Receipt Date: 20050204
  Transmission Date: 20050727
  Serious: No
  Sender: FDA-Public Use
  Company Number: 2005AP01025

PATIENT
  Sex: Male
  Weight: 40 kg

DRUGS (1)
  1. XYLOCAINE W/ EPINEPHRINE [Suspect]
     Dates: start: 20030718, end: 20030718

REACTIONS (3)
  - HYPERSENSITIVITY [None]
  - RASH MACULAR [None]
  - VISUAL DISTURBANCE [None]
